FAERS Safety Report 23457972 (Version 4)
Quarter: 2025Q2

REPORT INFORMATION
  Report Type: Spontaneous
  Country: PT (occurrence: PT)
  Receive Date: 20240130
  Receipt Date: 20250620
  Transmission Date: 20250717
  Serious: Yes (Life-Threatening, Hospitalization, Other)
  Sender: MYLAN
  Company Number: PT-FreseniusKabi-FK202400665

PATIENT
  Age: 56 Year
  Sex: Male

DRUGS (16)
  1. OXALIPLATIN [Suspect]
     Active Substance: OXALIPLATIN
     Indication: Adenocarcinoma gastric
  2. OXALIPLATIN [Suspect]
     Active Substance: OXALIPLATIN
     Route: 065
  3. OXALIPLATIN [Suspect]
     Active Substance: OXALIPLATIN
     Route: 065
  4. OXALIPLATIN [Suspect]
     Active Substance: OXALIPLATIN
  5. NIVOLUMAB [Concomitant]
     Active Substance: NIVOLUMAB
     Indication: Adenocarcinoma gastric
  6. NIVOLUMAB [Concomitant]
     Active Substance: NIVOLUMAB
     Route: 065
  7. NIVOLUMAB [Concomitant]
     Active Substance: NIVOLUMAB
     Route: 065
  8. NIVOLUMAB [Concomitant]
     Active Substance: NIVOLUMAB
  9. LEUCOVORIN [Concomitant]
     Active Substance: LEUCOVORIN\LEUCOVORIN CALCIUM
     Indication: Adenocarcinoma gastric
  10. LEUCOVORIN [Concomitant]
     Active Substance: LEUCOVORIN\LEUCOVORIN CALCIUM
     Route: 065
  11. LEUCOVORIN [Concomitant]
     Active Substance: LEUCOVORIN\LEUCOVORIN CALCIUM
     Route: 065
  12. LEUCOVORIN [Concomitant]
     Active Substance: LEUCOVORIN\LEUCOVORIN CALCIUM
  13. FLUOROURACIL [Concomitant]
     Active Substance: FLUOROURACIL
     Indication: Adenocarcinoma gastric
  14. FLUOROURACIL [Concomitant]
     Active Substance: FLUOROURACIL
     Route: 065
  15. FLUOROURACIL [Concomitant]
     Active Substance: FLUOROURACIL
     Route: 065
  16. FLUOROURACIL [Concomitant]
     Active Substance: FLUOROURACIL

REACTIONS (7)
  - Evans syndrome [Recovering/Resolving]
  - Renal tubular necrosis [Recovering/Resolving]
  - Off label use [Unknown]
  - Pallor [Unknown]
  - Hyperhidrosis [Unknown]
  - Back pain [Unknown]
  - Nausea [Unknown]
